FAERS Safety Report 20231506 (Version 1)
Quarter: 2021Q4

REPORT INFORMATION
  Report Type: Spontaneous
  Country: US (occurrence: US)
  Receive Date: 20211227
  Receipt Date: 20211227
  Transmission Date: 20220304
  Serious: Yes (Hospitalization)
  Sender: FDA-Public Use
  Company Number: US-NOVARTISTESTPH-NVSC2021US295174

PATIENT
  Weight: 125 kg

DRUGS (1)
  1. KYMRIAH [Suspect]
     Active Substance: TISAGENLECLEUCEL
     Indication: Acute lymphocytic leukaemia
     Dosage: (2.2E8 CAR T CELLS), ONCE/SINGLE
     Route: 042
     Dates: start: 20211120

REACTIONS (1)
  - White blood cell count decreased [Unknown]
